FAERS Safety Report 11283639 (Version 1)
Quarter: 2015Q3

REPORT INFORMATION
  Report Type: Spontaneous
  Country: US (occurrence: US)
  Receive Date: 20150720
  Receipt Date: 20150720
  Transmission Date: 20151125
  Serious: No
  Sender: FDA-Public Use
  Company Number: US-PFIZER INC-2015234385

PATIENT
  Age: 65 Year
  Sex: Male

DRUGS (3)
  1. BENZYLPENICILLIN POTASSIUM [Suspect]
     Active Substance: PENICILLIN G POTASSIUM
  2. ERYTHROMYCIN. [Suspect]
     Active Substance: ERYTHROMYCIN
  3. BIAXIN [Suspect]
     Active Substance: CLARITHROMYCIN

REACTIONS (1)
  - Drug hypersensitivity [Not Recovered/Not Resolved]
